FAERS Safety Report 6980835-1 (Version None)
Quarter: 2010Q3

REPORT INFORMATION
  Report Type: 
  Country: None (occurrence: None)
  Receive Date: 20100914
  Receipt Date: 20100902
  Transmission Date: 20110219
  Serious: Yes (Other)
  Sender: FDA-Public Use
  Company Number: GB-ELI_LILLY_AND_COMPANY-GB201009001342

PATIENT
  Sex: Female

DRUGS (1)
  1. GEMZAR [Suspect]
     Indication: HEPATIC NEOPLASM
     Dosage: UNK, UNKNOWN
     Route: 065

REACTIONS (4)
  - HYPOTENSION [None]
  - LIVER DISORDER [None]
  - RENAL IMPAIRMENT [None]
  - VISUAL IMPAIRMENT [None]
